FAERS Safety Report 5277807-4 (Version None)
Quarter: 2007Q1

REPORT INFORMATION
  Report Type: 
  Country: None (occurrence: None)
  Receive Date: 20070327
  Receipt Date: 20070315
  Transmission Date: 20070707
  Serious: Yes (Hospitalization)
  Sender: FDA-Public Use
  Company Number: SG-PFIZER INC-2007003547

PATIENT
  Sex: Female

DRUGS (4)
  1. SU-011,248 [Suspect]
     Indication: METASTATIC RENAL CELL CARCINOMA
     Route: 048
     Dates: start: 20060217, end: 20070107
  2. PYRIDOXINE HCL [Concomitant]
     Route: 048
  3. AMLODIPINE [Concomitant]
     Route: 048
     Dates: start: 20060314
  4. LEVOTHYROXINE SODIUM [Concomitant]
     Route: 048
     Dates: start: 20061222

REACTIONS (1)
  - INTRA-ABDOMINAL HAEMORRHAGE [None]
